FAERS Safety Report 6233145-4 (Version None)
Quarter: 2009Q2

REPORT INFORMATION
  Report Type: 
  Country: None (occurrence: None)
  Receive Date: 20090617
  Receipt Date: 20090613
  Transmission Date: 20091009
  Serious: Yes (Other)
  Sender: FDA-Public Use
  Company Number: US-RB-016876-09

PATIENT
  Sex: Female

DRUGS (3)
  1. SUBUTEX [Suspect]
     Dosage: DOSING INFORMATION UNKNOWN
     Route: 060
     Dates: start: 20051001, end: 20070401
  2. HEROIN [Suspect]
     Indication: DRUG USE FOR UNKNOWN INDICATION
     Dosage: PATIENT ^INJECTED^ HEROIN
     Route: 065
  3. CRACK COCAINE [Suspect]
     Indication: DRUG USE FOR UNKNOWN INDICATION
     Route: 065

REACTIONS (3)
  - DRUG EXPOSURE DURING PREGNANCY [None]
  - FOETAL DISORDER [None]
  - OVERDOSE [None]
